FAERS Safety Report 5091645-7 (Version None)
Quarter: 2006Q3

REPORT INFORMATION
  Report Type: 
  Country: None (occurrence: None)
  Receive Date: 20060825
  Receipt Date: 20060816
  Transmission Date: 20061208
  Serious: Yes (Hospitalization)
  Sender: FDA-Public Use
  Company Number: 2006BI011676

PATIENT
  Age: 72 Year
  Sex: Male

DRUGS (4)
  1. ZEVALIN [Suspect]
     Indication: NON-HODGKIN'S LYMPHOMA
     Dosage: 1X'; IV
     Route: 042
     Dates: start: 20060802, end: 20060802
  2. ZEVALIN [Suspect]
     Indication: NON-HODGKIN'S LYMPHOMA
     Dosage: 1X; IV
     Route: 042
     Dates: start: 20060810, end: 20060810
  3. RITUXIMAB [Concomitant]
  4. RITUXIMAB [Concomitant]

REACTIONS (5)
  - CONTUSION [None]
  - INFLUENZA LIKE ILLNESS [None]
  - NUCHAL RIGIDITY [None]
  - PRURITUS [None]
  - RASH [None]
